FAERS Safety Report 11593770 (Version 2)
Quarter: 2015Q4

REPORT INFORMATION
  Report Type: Spontaneous
  Country: None (occurrence: US)
  Receive Date: 20151005
  Receipt Date: 20151029
  Transmission Date: 20160304
  Serious: No
  Sender: FDA-Public Use
  Company Number: US-RARE DISEASE THERAPEUTICS, INC.-1042561

PATIENT
  Age: 8 Year
  Sex: Male

DRUGS (10)
  1. FERROUS SULFATE [Concomitant]
     Active Substance: FERROUS SULFATE\FERROUS SULFATE, DRIED
  2. L-METHYLFOLATE WITH VITAMINS B6 AND B12 [Concomitant]
  3. L-CARNITINE [Concomitant]
     Active Substance: LEVOCARNITINE
  4. CYSTADANE [Suspect]
     Active Substance: BETAINE
     Route: 048
     Dates: start: 20140807, end: 20150910
  5. METHIONINE [Concomitant]
     Active Substance: METHIONINE
  6. VITAMIN D [Concomitant]
     Active Substance: CHOLECALCIFEROL
  7. CYSTADANE [Suspect]
     Active Substance: BETAINE
     Indication: VITAMIN B COMPLEX DEFICIENCY
     Route: 048
  8. VITAMIN B12 [Concomitant]
     Active Substance: CYANOCOBALAMIN
  9. METANX [Concomitant]
     Active Substance: LEVOMEFOLATE CALCIUM\METHYLCOBALAMIN\PYRIDOXAL PHOSPHATE ANHYDROUS
  10. CYSTADANE [Suspect]
     Active Substance: BETAINE
     Route: 048

REACTIONS (3)
  - Vomiting [Recovered/Resolved]
  - Off label use [None]
  - Inappropriate schedule of drug administration [None]

NARRATIVE: CASE EVENT DATE: 20150910
